FAERS Safety Report 24850315 (Version 2)
Quarter: 2025Q1

REPORT INFORMATION
  Report Type: Spontaneous
  Country: US (occurrence: US)
  Receive Date: 20250116
  Receipt Date: 20250122
  Transmission Date: 20250409
  Serious: Yes (Other)
  Sender: PFIZER
  Company Number: US-PFIZER INC-PV202500005839

PATIENT
  Sex: Female

DRUGS (1)
  1. LORBRENA [Suspect]
     Active Substance: LORLATINIB
     Indication: Non-small cell lung cancer
     Dates: start: 20241120

REACTIONS (3)
  - Pericarditis [Unknown]
  - Blood cholesterol increased [Unknown]
  - Restless arm syndrome [Recovered/Resolved]

NARRATIVE: CASE EVENT DATE: 20250101
